FAERS Safety Report 9669072 (Version 2)
Quarter: 2013Q4

REPORT INFORMATION
  Report Type: Spontaneous
  Country: US (occurrence: US)
  Receive Date: 20131105
  Receipt Date: 20131206
  Transmission Date: 20140711
  Serious: Yes (Hospitalization)
  Sender: FDA-Public Use
  Company Number: US-ASTRAZENECA-2013SE79579

PATIENT
  Age: 80 Year
  Sex: Female
  Weight: 50.8 kg

DRUGS (10)
  1. SYMBICORT [Suspect]
     Indication: CHRONIC OBSTRUCTIVE PULMONARY DISEASE
     Dosage: 80/4.5 MCG, 2 PUFFS BID
     Route: 055
  2. CENTRUM SILVER [Concomitant]
     Indication: PROPHYLAXIS
  3. COMBIVENT [Concomitant]
     Indication: RESPIRATORY DISORDER
     Dosage: 2 PUFFS PRN
  4. OXYGEN [Concomitant]
     Dates: start: 2010, end: 2011
  5. OXYGEN [Concomitant]
     Dates: start: 2011
  6. VITAMIN D [Concomitant]
     Indication: VITAMIN D DECREASED
     Dosage: 2000 UNITS DAILY
     Dates: start: 2007
  7. B12 [Concomitant]
     Indication: VITAMIN B12 DECREASED
     Dates: start: 2010
  8. ASPIRIN [Concomitant]
     Indication: HAEMORRHAGE
     Dates: start: 2006
  9. IPRATROPIUM BROMIDE AND ALBUTEROL SULFATE NEBULIZER [Concomitant]
     Indication: DYSPNOEA
     Dosage: Q4H
     Dates: start: 2010
  10. CALCITONIN SALMON [Concomitant]
     Indication: OSTEOPOROSIS
     Dosage: ALTERNATE  2 SPRAYS DAILY
     Route: 045

REACTIONS (9)
  - Pneumonia [Unknown]
  - Mesothelioma [Unknown]
  - Dyspnoea [Unknown]
  - Vitamin D decreased [Unknown]
  - Vitamin B12 decreased [Unknown]
  - Vomiting [Unknown]
  - Total lung capacity decreased [Unknown]
  - Asthenia [Unknown]
  - Drug ineffective [Unknown]
